FAERS Safety Report 7406908-7 (Version None)
Quarter: 2011Q2

REPORT INFORMATION
  Report Type: 
  Country: None (occurrence: None)
  Receive Date: 20110411
  Receipt Date: 20110329
  Transmission Date: 20111010
  Serious: Yes (Death, Hospitalization)
  Sender: FDA-Public Use
  Company Number: IT-BAYER-2011-021950

PATIENT
  Sex: Male

DRUGS (9)
  1. LASIX [Concomitant]
     Dosage: 25 MG, BID
     Route: 048
  2. ASPIRIN [Suspect]
     Indication: ACUTE MYOCARDIAL INFARCTION
     Dosage: 1 DF, QD
     Route: 048
     Dates: start: 20110210, end: 20110308
  3. CARBIDOPA + LEVODOPA [Concomitant]
     Dosage: 125 MG, QID
  4. NITRAKET [Concomitant]
     Dosage: 10 MG, QD
     Route: 062
  5. LEVOFLOXACIN [Concomitant]
     Dosage: DAILY DOSE 1000 MG
  6. TAVANIC [Concomitant]
  7. PLAVIX [Suspect]
     Indication: ACUTE MYOCARDIAL INFARCTION
     Dosage: 75 MG, QD
     Route: 048
     Dates: start: 20110210, end: 20110308
  8. PANTORC [Suspect]
     Dosage: 20 MG, QD
     Route: 048
  9. TARGOCID [Concomitant]
     Dosage: 200 MG, QD
     Dates: end: 20110302

REACTIONS (5)
  - EPISTAXIS [None]
  - PULMONARY CONGESTION [None]
  - ANAEMIA [None]
  - HYPONATRAEMIA [None]
  - PYREXIA [None]
